FAERS Safety Report 17069124 (Version 1)
Quarter: 2019Q4

REPORT INFORMATION
  Report Type: Spontaneous
  Country: FR (occurrence: FR)
  Receive Date: 20191124
  Receipt Date: 20191124
  Transmission Date: 20200122
  Serious: Yes (Hospitalization)
  Sender: FDA-Public Use
  Company Number: FR-BEH-2019109568

PATIENT
  Age: 41 Year
  Sex: Female
  Weight: 53 kg

DRUGS (4)
  1. PRIVIGEN [Suspect]
     Active Substance: HUMAN IMMUNOGLOBULIN G
     Indication: IMMUNODEFICIENCY COMMON VARIABLE
     Dosage: 50 MILLIGRAM, Q3W
     Route: 041
     Dates: start: 2017
  2. CORTANCYL [Suspect]
     Active Substance: PREDNISONE
     Route: 048
     Dates: start: 201103
  3. LUTENYL [Suspect]
     Active Substance: NOMEGESTROL ACETATE
     Dosage: 1 CP, QD
     Route: 048
     Dates: start: 201903, end: 20190902
  4. FLAGYL [METRONIDAZOLE BENZOATE] [Suspect]
     Active Substance: METRONIDAZOLE BENZOATE
     Indication: GIARDIASIS
     Dosage: 1500 MILLIGRAM, QD
     Route: 048
     Dates: start: 201805, end: 20190603

REACTIONS (5)
  - Amyotrophy [Not Recovered/Not Resolved]
  - Gait disturbance [Not Recovered/Not Resolved]
  - Muscle spasms [Recovering/Resolving]
  - Muscle contractions involuntary [Not Recovered/Not Resolved]
  - Sensorimotor disorder [Not Recovered/Not Resolved]

NARRATIVE: CASE EVENT DATE: 201903
